FAERS Safety Report 4992988-5 (Version None)
Quarter: 2006Q2

REPORT INFORMATION
  Report Type: 
  Country: None (occurrence: None)
  Receive Date: 20060504
  Receipt Date: 20050923
  Transmission Date: 20061013
  Serious: Yes (Death)
  Sender: FDA-Public Use
  Company Number: US-MERCK-0509USA03588

PATIENT
  Age: 65 Year
  Sex: Male
  Weight: 86 kg

DRUGS (3)
  1. VIOXX [Suspect]
     Indication: ARTHRALGIA
     Route: 048
     Dates: start: 20010810, end: 20031025
  2. DARVOCET [Concomitant]
     Route: 065
  3. BACLOFEN [Concomitant]
     Route: 065

REACTIONS (9)
  - ACUTE MYOCARDIAL INFARCTION [None]
  - ARTERIOSCLEROSIS [None]
  - BACK PAIN [None]
  - BONE PAIN [None]
  - CERVICAL SPINAL STENOSIS [None]
  - CLONUS [None]
  - HYPERREFLEXIA [None]
  - HYPOAESTHESIA [None]
  - PAIN IN EXTREMITY [None]
